FAERS Safety Report 12922651 (Version 1)
Quarter: 2016Q4

REPORT INFORMATION
  Report Type: Spontaneous
  Country: US (occurrence: US)
  Receive Date: 20161108
  Receipt Date: 20161108
  Transmission Date: 20170207
  Serious: Yes (Other)
  Sender: FDA-Public Use
  Company Number: None

PATIENT
  Age: 63 Year
  Sex: Female
  Weight: 94.5 kg

DRUGS (14)
  1. HARVONI [Suspect]
     Active Substance: LEDIPASVIR\SOFOSBUVIR
     Indication: HEPATITIS C
     Route: 048
     Dates: start: 20160819, end: 20161108
  2. BENAZEPRIL-HCTZ [Concomitant]
     Active Substance: BENAZEPRIL HYDROCHLORIDE\HYDROCHLOROTHIAZIDE
  3. TRAZODONE [Concomitant]
     Active Substance: TRAZODONE HYDROCHLORIDE
  4. OSTEO BI-FLEX [Concomitant]
     Active Substance: CHONDROITIN SULFATE A\GLUCOSAMINE
  5. CHONDROITIN SULFATE COMPLEX [Concomitant]
  6. LORAZEPAM. [Concomitant]
     Active Substance: LORAZEPAM
  7. CALCIUM ANTACID [Concomitant]
     Active Substance: CALCIUM CARBONATE
  8. FIBER LAXATIVE [Concomitant]
     Active Substance: CALCIUM POLYCARBOPHIL
  9. PROLIXIN DECANOATE [Concomitant]
     Active Substance: FLUPHENAZINE DECANOATE
  10. RISPERDAL [Concomitant]
     Active Substance: RISPERIDONE
  11. VITAMIN E NATURAL [Concomitant]
  12. ATENOLOL. [Concomitant]
     Active Substance: ATENOLOL
  13. CELEBREX [Concomitant]
     Active Substance: CELECOXIB
  14. CALCIUM ASCORBATE [Concomitant]
     Active Substance: CALCIUM ASCORBATE

REACTIONS (1)
  - Rash [None]

NARRATIVE: CASE EVENT DATE: 20161108
